FAERS Safety Report 7176982-4 (Version None)
Quarter: 2010Q4

REPORT INFORMATION
  Report Type: 
  Country: None (occurrence: None)
  Receive Date: 20101220
  Receipt Date: 20100216
  Transmission Date: 20110411
  Serious: No
  Sender: FDA-Public Use
  Company Number: US-ABBOTT-10P-163-0627816-00

PATIENT
  Age: 56 Year
  Sex: Female
  Weight: 100.79 kg

DRUGS (3)
  1. ADVICOR [Suspect]
     Indication: HIGH DENSITY LIPOPROTEIN DECREASED
     Dosage: 2 TABS 500/20MG, TOTAL 1000/40MG AT HS
     Route: 048
     Dates: start: 20080301, end: 20090301
  2. ADVICOR [Suspect]
     Dosage: 500/20MG DAILY AT HS
     Route: 048
     Dates: start: 20070101, end: 20080301
  3. METFORMIN HCL [Concomitant]
     Indication: TYPE 2 DIABETES MELLITUS

REACTIONS (4)
  - ERYTHEMA [None]
  - FEELING HOT [None]
  - FLUSHING [None]
  - SKIN BURNING SENSATION [None]
